FAERS Safety Report 12949326 (Version 3)
Quarter: 2016Q4

REPORT INFORMATION
  Report Type: Spontaneous
  Country: JP (occurrence: JP)
  Receive Date: 20161116
  Receipt Date: 20161221
  Transmission Date: 20170207
  Serious: Yes (Hospitalization, Other)
  Sender: FDA-Public Use
  Company Number: JP-ASTRAZENECA-2016SF19535

PATIENT
  Age: 911 Month
  Sex: Male
  Weight: 50 kg

DRUGS (11)
  1. MECOBALAMIN [Concomitant]
     Active Substance: METHYLCOBALAMIN
     Indication: NEUROPATHY PERIPHERAL
     Dosage: 500 MICROGRAMS THREE TIMES A DAY, AFTER EVERY MEAL
     Route: 048
     Dates: start: 20140722
  2. MAGNESIUM OXIDE. [Concomitant]
     Active Substance: MAGNESIUM OXIDE
     Indication: CONSTIPATION
     Route: 048
     Dates: start: 20151009
  3. CELECOX [Concomitant]
     Active Substance: CELECOXIB
     Dosage: 100 MILLGIRAMS, TWO TIMES A DAY, AFTER BREAKFAST AND EVENING MEAL
     Route: 048
     Dates: start: 20140722
  4. MOHRUS [Concomitant]
     Active Substance: KETOPROFEN
     Dosage: 10CM X 14CM, LOWER EXTREMITIES, TWO TIMES A DAY
     Route: 003
  5. ANORO ELLIPTA [Concomitant]
     Active Substance: UMECLIDINIUM BROMIDE\VILANTEROL TRIFENATATE
     Indication: CHRONIC OBSTRUCTIVE PULMONARY DISEASE
     Route: 055
     Dates: start: 20160725
  6. SPIRIVA [Concomitant]
     Active Substance: TIOTROPIUM BROMIDE MONOHYDRATE
     Indication: CHRONIC OBSTRUCTIVE PULMONARY DISEASE
     Route: 055
     Dates: start: 20060206, end: 20160725
  7. KETOBUN [Concomitant]
     Route: 048
     Dates: start: 20070820
  8. REBAMIPIDE [Concomitant]
     Active Substance: REBAMIPIDE
     Indication: BACK PAIN
     Dosage: 100 MG TWO TIMES DAY AFTER BREAKFAST AND EVENING MEAL
     Route: 048
     Dates: start: 20140722
  9. EURODIN [Concomitant]
     Active Substance: ESTAZOLAM
     Indication: INSOMNIA
     Route: 048
     Dates: start: 20061016
  10. CRESTOR [Suspect]
     Active Substance: ROSUVASTATIN CALCIUM
     Indication: HYPERLIPIDAEMIA
     Dosage: 2.5 MG EVERY DAY AFTER EVENING MEAL
     Route: 048
     Dates: start: 20121120, end: 20161017
  11. LAC-B [Concomitant]
     Active Substance: BIFIDOBACTERIUM SPP.
     Indication: CONSTIPATION
     Route: 048
     Dates: start: 20070213

REACTIONS (3)
  - Neuropathy peripheral [Not Recovered/Not Resolved]
  - Cholecystitis [Unknown]
  - Rhabdomyolysis [Recovered/Resolved]

NARRATIVE: CASE EVENT DATE: 201407
